FAERS Safety Report 4953523-0 (Version None)
Quarter: 2006Q1

REPORT INFORMATION
  Report Type: 
  Country: None (occurrence: None)
  Receive Date: 20060324
  Receipt Date: 20060213
  Transmission Date: 20060701
  Serious: Yes (Hospitalization)
  Sender: FDA-Public Use
  Company Number: JP-ROCHE-436872

PATIENT
  Age: 55 Year
  Sex: Male

DRUGS (3)
  1. TAMIFLU [Suspect]
     Route: 048
     Dates: start: 20060210, end: 20060210
  2. LOXONIN [Suspect]
     Indication: HYPERTHERMIA
     Route: 048
     Dates: start: 20060210, end: 20060210
  3. UNSPECIFIED DRUGS [Concomitant]
     Dosage: DRUG REPORTED AS ANTIPYRETICS, ANALGESICS AND ANTI-INFLAMMATORY AGENTS.
     Route: 065

REACTIONS (4)
  - FALL [None]
  - HEAD INJURY [None]
  - LOSS OF CONSCIOUSNESS [None]
  - SHOCK [None]
